FAERS Safety Report 20644251 (Version 1)
Quarter: 2022Q1

REPORT INFORMATION
  Report Type: Spontaneous
  Country: US (occurrence: US)
  Receive Date: 20220328
  Receipt Date: 20220328
  Transmission Date: 20220423
  Serious: No
  Sender: FDA-Public Use
  Company Number: US-PFIZER INC-2021805540

PATIENT
  Age: 67 Year
  Sex: Female

DRUGS (5)
  1. IBRANCE [Suspect]
     Active Substance: PALBOCICLIB
     Indication: Breast cancer female
     Dosage: 125 MG, CYCLIC (1 DAILY FOR 21 DAYS)
     Route: 048
     Dates: start: 20210511
  2. IMODIUM [Concomitant]
     Active Substance: LOPERAMIDE HYDROCHLORIDE
     Dosage: UNK
  3. CALCIUM CITRATE/COLECALCIFEROL/MAGNESIUM [Concomitant]
     Dosage: UNK
  4. XGEVA [Concomitant]
     Active Substance: DENOSUMAB
     Dosage: UNK (120 MG/ 1.7 ML VIAL )
  5. FASLODEX [Concomitant]
     Active Substance: FULVESTRANT
     Dosage: UNK (FASLODEX 250 MG / 5ML SYRINGE)

REACTIONS (2)
  - Frequent bowel movements [Unknown]
  - Diarrhoea [Unknown]
